FAERS Safety Report 16111029 (Version 1)
Quarter: 2019Q2

REPORT INFORMATION
  Report Type: Spontaneous
  Country: US (occurrence: US)
  Receive Date: 20190322
  Receipt Date: 20190322
  Transmission Date: 20190711
  Serious: Yes (Hospitalization, Other)
  Sender: FDA-Public Use
  Company Number: None

PATIENT
  Age: 24 Year
  Sex: Male

DRUGS (3)
  1. HALOPERIDOL- VARIABLE DOSE, STRENGTH AND FORMULATIONS PRESCRIBED [Suspect]
     Active Substance: HALOPERIDOL
     Indication: SCHIZOPHRENIA
     Dates: start: 20181206, end: 20181225
  2. BENZTROPINE. [Concomitant]
     Active Substance: BENZTROPINE
     Dates: start: 20181213, end: 20181226
  3. HALOPERIDOL- VARIABLE DOSE, STRENGTH AND FORMULATIONS PRESCRIBED [Suspect]
     Active Substance: HALOPERIDOL
     Indication: PSYCHOTIC DISORDER
     Dates: start: 20181206, end: 20181225

REACTIONS (1)
  - Neuroleptic malignant syndrome [None]

NARRATIVE: CASE EVENT DATE: 20181226
